FAERS Safety Report 6461800-X (Version None)
Quarter: 2009Q4

REPORT INFORMATION
  Report Type: 
  Country: None (occurrence: None)
  Receive Date: 20091130
  Receipt Date: 20091118
  Transmission Date: 20100525
  Serious: Yes (Hospitalization)
  Sender: FDA-Public Use
  Company Number: US-MERCK-0911USA02959

PATIENT
  Age: 75 Year
  Sex: Male

DRUGS (3)
  1. DECADRON [Suspect]
     Indication: DRUG USE FOR UNKNOWN INDICATION
     Route: 065
  2. THALOMID [Suspect]
     Indication: MULTIPLE MYELOMA
     Route: 048
     Dates: start: 20090301, end: 20090401
  3. THALOMID [Suspect]
     Route: 048
     Dates: start: 20080131

REACTIONS (3)
  - BLOOD GLUCOSE INCREASED [None]
  - DISEASE PROGRESSION [None]
  - MUSCULAR WEAKNESS [None]
